FAERS Safety Report 18218126 (Version 1)
Quarter: 2020Q3

REPORT INFORMATION
  Report Type: Spontaneous
  Country: FR (occurrence: FR)
  Receive Date: 20200901
  Receipt Date: 20200901
  Transmission Date: 20201103
  Serious: Yes (Other)
  Sender: FDA-Public Use
  Company Number: FR-MYLANLABS-2020M1074811

PATIENT
  Age: 87 Year
  Sex: Female
  Weight: 90 kg

DRUGS (1)
  1. HULIO [Suspect]
     Active Substance: ADALIMUMAB-FKJP
     Indication: CROHN^S DISEASE
     Dosage: 40 MILLIGRAM, BIWEEKLY
     Route: 058
     Dates: start: 20200318

REACTIONS (1)
  - Major depression [Not Recovered/Not Resolved]

NARRATIVE: CASE EVENT DATE: 202004
